FAERS Safety Report 14301800 (Version 1)
Quarter: 2017Q4

REPORT INFORMATION
  Report Type: Spontaneous
  Country: US (occurrence: US)
  Receive Date: 20171219
  Receipt Date: 20171219
  Transmission Date: 20180321
  Serious: No
  Sender: FDA-Public Use
  Company Number: US-SUPERNUS PHARMACEUTICALS, INC.-2017SUP00029

PATIENT
  Sex: Female
  Weight: 72.56 kg

DRUGS (8)
  1. CYCLOBENZAPRINE. [Concomitant]
     Active Substance: CYCLOBENZAPRINE
  2. MELATONIN [Suspect]
     Active Substance: MELATONIN
  3. FUROSEMIDE. [Concomitant]
     Active Substance: FUROSEMIDE
  4. L-LYSINE [Concomitant]
     Active Substance: LYSINE
  5. COLLAGEN [Concomitant]
     Active Substance: COLLAGEN
  6. GAS-X [Concomitant]
     Active Substance: DIMETHICONE
  7. GLUCOSAMINE+MSM [Concomitant]
     Dosage: 1500 MG, UNK
  8. OXTELLAR XR [Suspect]
     Active Substance: OXCARBAZEPINE
     Dosage: 150 MG, 1X/DAY
     Route: 048
     Dates: start: 20170131

REACTIONS (8)
  - Confusional state [Unknown]
  - Balance disorder [Unknown]
  - Fatigue [None]
  - Loss of personal independence in daily activities [Unknown]
  - Amnesia [Unknown]
  - Headache [Unknown]
  - Off label use [Not Recovered/Not Resolved]
  - Somnolence [Unknown]
